FAERS Safety Report 12234278 (Version 1)
Quarter: 2016Q2

REPORT INFORMATION
  Report Type: Spontaneous
  Country: JP (occurrence: JP)
  Receive Date: 20160404
  Receipt Date: 20160404
  Transmission Date: 20160815
  Serious: Yes (Other)
  Sender: FDA-Public Use
  Company Number: JP-MYLANLABS-2016M1013611

PATIENT

DRUGS (3)
  1. BEVACIZUMAB [Concomitant]
     Active Substance: BEVACIZUMAB
     Indication: HEPATIC CANCER RECURRENT
     Dosage: 5 MG/KG, DAY 1
     Route: 065
  2. LEVOFOLINIC ACID [Concomitant]
     Active Substance: LEVOLEUCOVORIN
     Indication: HEPATIC CANCER RECURRENT
     Dosage: 200 MG/M2, DAY 1
     Route: 065
  3. FLUOROURACIL. [Suspect]
     Active Substance: FLUOROURACIL
     Indication: HEPATIC CANCER RECURRENT
     Dosage: 2400 MG/M2, CONTINUOUS INFUSION, DAYS 1-3
     Route: 050

REACTIONS (1)
  - Hyperammonaemic encephalopathy [Recovered/Resolved]
